FAERS Safety Report 17184990 (Version 8)
Quarter: 2020Q4

REPORT INFORMATION
  Report Type: Report from Study
  Country: DE (occurrence: DE)
  Receive Date: 20191220
  Receipt Date: 20201222
  Transmission Date: 20210113
  Serious: Yes (Other)
  Sender: FDA-Public Use
  Company Number: DE-MYLANLABS-2019M1125952

PATIENT
  Sex: Female
  Weight: 71 kg

DRUGS (10)
  1. KISQALI [Suspect]
     Active Substance: RIBOCICLIB
     Indication: BREAST CANCER METASTATIC
     Dosage: 600 MG, QD (21 DAYS INTAKE, 7 DAYS PAUSE)
     Route: 048
     Dates: start: 20190721
  2. KISQALI [Suspect]
     Active Substance: RIBOCICLIB
     Dosage: 600 MILLIGRAM (21 DAYS INTAKE, 7 DAYS PAUSE)
     Route: 048
     Dates: start: 20190813, end: 20190819
  3. KISQALI [Suspect]
     Active Substance: RIBOCICLIB
     Dosage: 600 MG (21 DAYS INTAKE, 7 DAYS PAUSE)
     Route: 048
     Dates: start: 20200408, end: 20200728
  4. KISQALI [Suspect]
     Active Substance: RIBOCICLIB
     Dosage: 600 MILLIGRAM, QD (21 DAYS INTAKE, 7 DAYS PAUSE)
     Route: 048
     Dates: start: 20200826
  5. KISQALI [Suspect]
     Active Substance: RIBOCICLIB
     Dosage: 600 MILLIGRAM, QD (21 DAYS INTAKE, 7 DAYS PAUSE)
     Route: 048
     Dates: start: 20190731, end: 20190805
  6. FULVESTRANT. [Suspect]
     Active Substance: FULVESTRANT
     Indication: BREAST CANCER METASTATIC
     Dosage: 250 MG, BIW
     Route: 030
     Dates: start: 20190730
  7. QUETIAPINE. [Concomitant]
     Active Substance: QUETIAPINE
     Indication: PRODUCT USED FOR UNKNOWN INDICATION
     Dosage: UNK
     Route: 065
  8. ESCITALOPRAM [Concomitant]
     Active Substance: ESCITALOPRAM OXALATE
     Indication: PRODUCT USED FOR UNKNOWN INDICATION
     Dosage: 50 MG, QD
     Route: 048
     Dates: start: 2016
  9. KISQALI [Suspect]
     Active Substance: RIBOCICLIB
     Dosage: 600 MG (21 DAYS INTAKE, 7 DAYS PAUSE)
     Route: 048
     Dates: start: 20190827, end: 20200401
  10. L-THYROXIN                         /00068001/ [Concomitant]
     Active Substance: LEVOTHYROXINE
     Indication: THYROID DISORDER
     Dosage: 100 MICROGRAM, QD
     Route: 065

REACTIONS (15)
  - Blood count abnormal [Unknown]
  - Vomiting [Recovering/Resolving]
  - Tumour marker increased [Not Recovered/Not Resolved]
  - Neutropenia [Recovered/Resolved]
  - General physical health deterioration [Unknown]
  - Basophil count increased [Unknown]
  - White blood cell count decreased [Unknown]
  - Weight decreased [Not Recovered/Not Resolved]
  - Dry skin [Not Recovered/Not Resolved]
  - Decreased appetite [Not Recovered/Not Resolved]
  - Monocyte count decreased [Unknown]
  - Platelet count decreased [Unknown]
  - Fatigue [Not Recovered/Not Resolved]
  - Thyroid mass [Not Recovered/Not Resolved]
  - Blister [Not Recovered/Not Resolved]

NARRATIVE: CASE EVENT DATE: 20190813
